FAERS Safety Report 18688064 (Version 1)
Quarter: 2020Q4

REPORT INFORMATION
  Report Type: Spontaneous
  Country: FR (occurrence: FR)
  Receive Date: 20201231
  Receipt Date: 20201231
  Transmission Date: 20210114
  Serious: Yes (Other)
  Sender: FDA-Public Use
  Company Number: FR-TEVA-2020-FR-1863734

PATIENT
  Age: 58 Year
  Sex: Female
  Weight: 116.5 kg

DRUGS (7)
  1. ALPRAZOLAM. [Suspect]
     Active Substance: ALPRAZOLAM
     Indication: ANXIETY
     Dosage: 1.5 MG
     Route: 048
     Dates: end: 20201104
  2. TACROLIMUS MONOHYDRATE [Interacting]
     Active Substance: TACROLIMUS
     Indication: PROPHYLAXIS AGAINST TRANSPLANT REJECTION
     Dosage: 2 MG
     Route: 048
     Dates: start: 20201106
  3. NEFOPAM MEDISOL 20 MG/2 ML, SOLUTION INJECTABLE [Interacting]
     Active Substance: NEFOPAM HYDROCHLORIDE
     Indication: ANALGESIC INTERVENTION SUPPORTIVE THERAPY
     Dosage: 80 MG
     Route: 041
     Dates: start: 20201105, end: 20201108
  4. PIPERACILLINE PANPHARMA [Interacting]
     Active Substance: PIPERACILLIN SODIUM
     Indication: ANTIBIOTIC PROPHYLAXIS
     Dosage: 16 GRAM
     Route: 041
     Dates: start: 20201105, end: 20201108
  5. TOPALGIC 100 MG/2 ML, SOLUTION INJECTABLE EN AMPOULE [Interacting]
     Active Substance: TRAMADOL HYDROCHLORIDE
     Indication: ANALGESIC INTERVENTION SUPPORTIVE THERAPY
     Route: 041
     Dates: start: 20201105, end: 20201108
  6. KETAMINE RENAUDIN 50 MG/ML, SOLUTION INJECTABLE [Interacting]
     Active Substance: KETAMINE HYDROCHLORIDE
     Indication: ANALGESIC INTERVENTION SUPPORTIVE THERAPY
     Dosage: 50 MG
     Route: 041
     Dates: start: 20201105, end: 20201109
  7. VALGANCICLOVIR ARROW 450 MG, COMPRIME PELLICULE [Interacting]
     Active Substance: VALGANCICLOVIR HYDROCHLORIDE
     Indication: ANTIVIRAL PROPHYLAXIS
     Dosage: 900 MG
     Route: 048
     Dates: start: 20201106

REACTIONS (2)
  - Drug interaction [Unknown]
  - Tonic clonic movements [Recovered/Resolved]

NARRATIVE: CASE EVENT DATE: 20201108
